FAERS Safety Report 20960275 (Version 2)
Quarter: 2022Q3

REPORT INFORMATION
  Report Type: Report from Study
  Country: BR (occurrence: BR)
  Receive Date: 20220615
  Receipt Date: 20220705
  Transmission Date: 20221026
  Serious: No
  Sender: FDA-Public Use
  Company Number: BR-NOVARTISPH-NVSC2022BR136279

PATIENT
  Age: 44 Year
  Sex: Female

DRUGS (1)
  1. COSENTYX [Suspect]
     Active Substance: SECUKINUMAB
     Indication: Psoriatic arthropathy
     Dosage: 300 MG (ATTACK DOSES)
     Route: 065

REACTIONS (17)
  - Arthralgia [Unknown]
  - Pain [Recovering/Resolving]
  - Decreased immune responsiveness [Unknown]
  - Vulvovaginal candidiasis [Recovering/Resolving]
  - Vulvovaginal dryness [Recovering/Resolving]
  - Fibromyalgia [Unknown]
  - Swelling face [Unknown]
  - Dyspepsia [Unknown]
  - Headache [Recovered/Resolved]
  - Abdominal pain upper [Unknown]
  - Sinusitis [Recovered/Resolved]
  - Influenza like illness [Recovered/Resolved]
  - Nasal congestion [Not Recovered/Not Resolved]
  - Rhinorrhoea [Recovered/Resolved]
  - Muscle fatigue [Recovering/Resolving]
  - Illness [Recovering/Resolving]
  - Fatigue [Recovering/Resolving]

NARRATIVE: CASE EVENT DATE: 20220606
